FAERS Safety Report 11907731 (Version 1)
Quarter: 2016Q1

REPORT INFORMATION
  Report Type: Report from Study
  Country: US (occurrence: US)
  Receive Date: 20160111
  Receipt Date: 20160111
  Transmission Date: 20160526
  Serious: Yes (Hospitalization)
  Sender: FDA-Public Use
  Company Number: US-ABBVIE-15P-163-1497448-00

PATIENT
  Age: 75 Year
  Sex: Female

DRUGS (1)
  1. DUOPA [Suspect]
     Active Substance: CARBIDOPA\LEVODOPA
     Indication: PARKINSON^S DISEASE
     Route: 065
     Dates: start: 20140724, end: 20151109

REACTIONS (6)
  - Stoma site discharge [Unknown]
  - Stoma site erythema [Unknown]
  - Abdominal pain [Not Recovered/Not Resolved]
  - Stoma site pain [Unknown]
  - Device dislocation [Recovered/Resolved]
  - Device kink [Recovered/Resolved]

NARRATIVE: CASE EVENT DATE: 20151108
